FAERS Safety Report 13963874 (Version 5)
Quarter: 2017Q4

REPORT INFORMATION
  Report Type: Report from Study
  Country: None (occurrence: BE)
  Receive Date: 20170913
  Receipt Date: 20171206
  Transmission Date: 20180320
  Serious: Yes (Hospitalization, Other)
  Sender: FDA-Public Use
  Company Number: BE-ABBVIE-17K-013-1969576-00

PATIENT
  Age: 77 Year
  Sex: Male

DRUGS (8)
  1. DUODOPA [Suspect]
     Active Substance: CARBIDOPA\LEVODOPA
     Dosage: AM: 3.5 ML??CD: 3.4 ML/HR DURING 16 HRS??ED: 1 ML
     Route: 050
     Dates: start: 20170303, end: 20170515
  2. DUODOPA [Suspect]
     Active Substance: CARBIDOPA\LEVODOPA
     Dosage: MD=2.8ML?CD=2.8ML(AM)-4ML(PM)/HR DURING 16HRS?EDA=BETWEEN 1.5 AND 3ML
     Route: 050
     Dates: start: 20170921
  3. QUETIAPINE. [Concomitant]
     Active Substance: QUETIAPINE
     Indication: PRODUCT USED FOR UNKNOWN INDICATION
  4. ALGOTRA [Suspect]
     Active Substance: ACETAMINOPHEN\TRAMADOL HYDROCHLORIDE
     Indication: PRODUCT USED FOR UNKNOWN INDICATION
     Route: 048
  5. DUODOPA [Suspect]
     Active Substance: CARBIDOPA\LEVODOPA
     Indication: PARKINSON^S DISEASE
     Dosage: AM: 5 ML??CD: 3.6 ML/HR DURING 16 HRS??ED: 2 ML
     Route: 050
     Dates: start: 20150126, end: 20150127
  6. DUODOPA [Suspect]
     Active Substance: CARBIDOPA\LEVODOPA
     Dosage: DOSES CONTINUOUSLY MONITORED AND ADAPTED
     Route: 050
     Dates: start: 20150127, end: 20170303
  7. DUODOPA [Suspect]
     Active Substance: CARBIDOPA\LEVODOPA
     Dosage: MD=3.7ML?CD=3.5ML/HR DURING 16HRS?EDA=1ML
     Route: 050
     Dates: start: 20170515, end: 20170705
  8. DUODOPA [Suspect]
     Active Substance: CARBIDOPA\LEVODOPA
     Dosage: MD=3ML?CD=3.1ML/HR DURING 16HRS?EDA=1ML
     Route: 050
     Dates: start: 20170705, end: 20170921

REACTIONS (13)
  - Cognitive disorder [Unknown]
  - Disorientation [Unknown]
  - Aggression [Unknown]
  - Hand fracture [Unknown]
  - Dehydration [Unknown]
  - Psychiatric decompensation [Unknown]
  - Upper limb fracture [Unknown]
  - Device occlusion [Recovered/Resolved]
  - Agitation [Recovering/Resolving]
  - Depression [Unknown]
  - General physical health deterioration [Unknown]
  - Face injury [Unknown]
  - Fall [Recovered/Resolved]

NARRATIVE: CASE EVENT DATE: 20170429
